FAERS Safety Report 13014274 (Version 1)
Quarter: 2016Q4

REPORT INFORMATION
  Report Type: Spontaneous
  Country: US (occurrence: US)
  Receive Date: 20161209
  Receipt Date: 20161209
  Transmission Date: 20170207
  Serious: Yes (Hospitalization)
  Sender: FDA-Public Use
  Company Number: US-CHIESI USA INC.-US-2016CHI000695

PATIENT

DRUGS (3)
  1. BETHKIS [Suspect]
     Active Substance: TOBRAMYCIN
     Indication: CYSTIC FIBROSIS
     Dosage: 300 MG/4 ML, BID
     Route: 055
     Dates: start: 20150813
  2. PULMOZYME [Suspect]
     Active Substance: DORNASE ALFA
     Indication: CYSTIC FIBROSIS
     Dosage: 2.5 MG/2.5 ML, ONCE DAILY
     Route: 055
     Dates: start: 20140108
  3. TOBI [Concomitant]
     Active Substance: TOBRAMYCIN
     Indication: PRODUCT USED FOR UNKNOWN INDICATION
     Dosage: 300 MG/5 ML, FREQUENCY UNKNOWN

REACTIONS (2)
  - Disease complication [None]
  - Cystic fibrosis [Unknown]

NARRATIVE: CASE EVENT DATE: 2015
